FAERS Safety Report 9690795 (Version 2)
Quarter: 2013Q4

REPORT INFORMATION
  Report Type: Spontaneous
  Country: US (occurrence: US)
  Receive Date: 20131115
  Receipt Date: 20131230
  Transmission Date: 20140711
  Serious: No
  Sender: FDA-Public Use
  Company Number: US-PFIZER INC-2013325571

PATIENT
  Age: 84 Year
  Sex: Male

DRUGS (7)
  1. PRISTIQ [Suspect]
     Indication: PAIN
     Dosage: 50 MG, DAILY
     Route: 048
     Dates: start: 2009, end: 20130930
  2. PRISTIQ [Suspect]
     Indication: NEUROPATHY PERIPHERAL
     Dosage: 25 MG, 1X/DAY (QD)
     Route: 048
     Dates: start: 20131001, end: 20131010
  3. PRISTIQ [Suspect]
     Dosage: 25 MG, ALTERNATE DAY
     Route: 048
     Dates: start: 20131011, end: 20131015
  4. PRISTIQ [Suspect]
     Dosage: 25 MG, DAILY
     Route: 048
     Dates: start: 20131016, end: 20131025
  5. PRISTIQ [Suspect]
     Dosage: 12.5 MG, DAILY
     Route: 048
     Dates: start: 20131026, end: 20131106
  6. NEURONTIN [Concomitant]
     Dosage: 900 MG, 1X/DAY (HS)
  7. COZAAR [Concomitant]
     Dosage: 50 MG, UNK

REACTIONS (10)
  - Drug withdrawal syndrome [Unknown]
  - Dizziness [Unknown]
  - Nausea [Unknown]
  - Headache [Unknown]
  - Weight decreased [Unknown]
  - Eating disorder [Unknown]
  - Asthenia [Unknown]
  - Dyspepsia [Unknown]
  - Malaise [Unknown]
  - Off label use [Unknown]
